FAERS Safety Report 10012292 (Version 1)
Quarter: 2014Q1

REPORT INFORMATION
  Report Type: Spontaneous
  Country: US (occurrence: None)
  Receive Date: 20140313
  Receipt Date: 20140313
  Transmission Date: 20141002
  Serious: Yes (Life-Threatening, Other)
  Sender: FDA-Public Use
  Company Number: None

PATIENT
  Age: 65 Year
  Sex: Female
  Weight: 69.85 kg

DRUGS (1)
  1. AZITHROMYCIN [Suspect]
     Indication: COUGH
     Dosage: 2 TABS DAY 1, 1 TAB DAYS 2-5
     Route: 048
     Dates: start: 20140306, end: 20140306

REACTIONS (4)
  - Chronic obstructive pulmonary disease [None]
  - Abdominal pain upper [None]
  - Nausea [None]
  - Feeling of body temperature change [None]
